FAERS Safety Report 5922403-6 (Version None)
Quarter: 2008Q4

REPORT INFORMATION
  Report Type: 
  Country: None (occurrence: None)
  Receive Date: 20081017
  Receipt Date: 20081007
  Transmission Date: 20090506
  Serious: Yes (Other)
  Sender: FDA-Public Use
  Company Number: US-WATSON-2008-05985

PATIENT
  Age: 57 Year
  Sex: Female

DRUGS (7)
  1. PENTAZOCINE + NALOXONE (WATSON LABORATORIES) [Suspect]
     Indication: REVERSAL OF OPIATE ACTIVITY
     Dosage: 0.4 MG, X 3 DOSES
     Route: 042
     Dates: start: 20080101, end: 20080101
  2. BUPROPION HYDROCHLORIDE [Suspect]
     Indication: DRUG USE FOR UNKNOWN INDICATION
     Route: 065
  3. FENTANYL [Suspect]
     Indication: DRUG USE FOR UNKNOWN INDICATION
     Dosage: 150MCG/HR
     Route: 062
  4. OXYCODONE HYDROCHLORIDE AND ACETAMINOPHEN [Suspect]
     Indication: DRUG USE FOR UNKNOWN INDICATION
     Dosage: 30 MG, TID
     Route: 048
  5. DULOXETINE [Suspect]
     Indication: DRUG USE FOR UNKNOWN INDICATION
     Dosage: 60 MG, TID
     Route: 048
  6. TOBACCO [Suspect]
     Indication: TOBACCO USER
  7. LAMOTRIGINE [Concomitant]
     Indication: DRUG USE FOR UNKNOWN INDICATION

REACTIONS (3)
  - DRUG INTERACTION [None]
  - DYSKINESIA [None]
  - NEUROLEPTIC MALIGNANT SYNDROME [None]
